FAERS Safety Report 10034658 (Version 2)
Quarter: 2014Q2

REPORT INFORMATION
  Report Type: Spontaneous
  Country: SE (occurrence: SE)
  Receive Date: 20140325
  Receipt Date: 20140407
  Transmission Date: 20141212
  Serious: Yes (Other)
  Sender: FDA-Public Use
  Company Number: SE-ASTELLAS-2014EU002213

PATIENT
  Sex: Male

DRUGS (10)
  1. XTANDI [Suspect]
     Indication: PROSTATE CANCER METASTATIC
     Dosage: 160 MG, UID/QD
     Route: 048
     Dates: start: 20140122
  2. OMEPRAZOL                          /00661201/ [Concomitant]
     Dosage: UNK
     Route: 065
  3. CALCICHEW [Concomitant]
     Dosage: UNK
     Route: 065
  4. TROMBYL [Concomitant]
     Dosage: UNK
     Route: 065
  5. AMLODIPIN                          /00972401/ [Concomitant]
     Dosage: UNK
     Route: 065
  6. ENANTON [Concomitant]
     Dosage: UNK
     Route: 065
  7. PANODIL [Concomitant]
     Dosage: UNK
     Route: 065
  8. LORATADIN [Concomitant]
     Dosage: 10 UNK, UNK
     Route: 065
  9. EMOVAT [Concomitant]
     Dosage: UNK
     Route: 065
  10. FICORTRIL /00028604/ [Suspect]
     Dosage: UNK
     Route: 065

REACTIONS (2)
  - Dysuria [Recovering/Resolving]
  - Urinary tract infection [Unknown]
